FAERS Safety Report 6686453-7 (Version None)
Quarter: 2010Q2

REPORT INFORMATION
  Report Type: 
  Country: None (occurrence: None)
  Receive Date: 20100419
  Receipt Date: 20100406
  Transmission Date: 20101027
  Serious: Yes (Hospitalization, Other)
  Sender: FDA-Public Use
  Company Number: R0007614A

PATIENT
  Sex: Female

DRUGS (4)
  1. BLINDED VACCINE [Suspect]
     Route: 030
     Dates: start: 20090928, end: 20090928
  2. DIGOXIN [Suspect]
     Indication: ATRIAL FIBRILLATION
     Dosage: .25MG PER DAY
     Route: 048
     Dates: start: 20091101, end: 20091125
  3. METOPROLOL TARTRATE [Concomitant]
     Indication: HYPERTENSION
     Dosage: 50MG PER DAY
     Route: 048
  4. SYMBICORT [Concomitant]
     Route: 055

REACTIONS (2)
  - CARDIAC FAILURE [None]
  - DRUG TOXICITY [None]
